FAERS Safety Report 19630036 (Version 1)
Quarter: 2021Q3

REPORT INFORMATION
  Report Type: Other
  Country: US (occurrence: US)
  Receive Date: 20210728
  Receipt Date: 20210728
  Transmission Date: 20211014
  Serious: Yes (Hospitalization, Other)
  Sender: FDA-Public Use
  Company Number: US-ROCHE-2792924

PATIENT
  Age: 65 Year
  Sex: Male
  Weight: 71.28 kg

DRUGS (14)
  1. PROCHLORPERAZINE. [Concomitant]
     Active Substance: PROCHLORPERAZINE
     Indication: NAUSEA
  2. RITALIN [Concomitant]
     Active Substance: METHYLPHENIDATE HYDROCHLORIDE
     Route: 048
  3. GABAPENTIN. [Concomitant]
     Active Substance: GABAPENTIN
     Route: 048
  4. BACLOFEN. [Concomitant]
     Active Substance: BACLOFEN
     Route: 048
  5. PROCHLORPERAZINE. [Concomitant]
     Active Substance: PROCHLORPERAZINE
     Indication: VOMITING
     Dosage: EVERY 6 HOURS
     Route: 048
     Dates: start: 20201215
  6. OCREVUS [Suspect]
     Active Substance: OCRELIZUMAB
     Indication: SECONDARY PROGRESSIVE MULTIPLE SCLEROSIS
     Dosage: DATE OF TREATMENT 20?JUL?2020, 14?JAN?2020, 31?MAY?2019, 01?JUN?2018, 30?NOV?2018, 29?NOV?2017, 13?D
     Route: 042
     Dates: start: 20171129, end: 20200720
  7. EMEND [Concomitant]
     Active Substance: APREPITANT
     Indication: NAUSEA
     Dosage: WITH CHEMOTHERAPY INFUSION
     Route: 042
     Dates: start: 20201215, end: 20210525
  8. EMEND [Concomitant]
     Active Substance: APREPITANT
     Indication: VOMITING
  9. TRINTELLIX [Concomitant]
     Active Substance: VORTIOXETINE HYDROBROMIDE
     Route: 048
     Dates: start: 2015, end: 202010
  10. TRINTELLIX [Concomitant]
     Active Substance: VORTIOXETINE HYDROBROMIDE
     Route: 048
  11. TAMSULOSIN HCL [Concomitant]
     Active Substance: TAMSULOSIN HYDROCHLORIDE
     Indication: DYSURIA
     Route: 048
     Dates: start: 2019
  12. TRAZODONE [Concomitant]
     Active Substance: TRAZODONE HYDROCHLORIDE
     Dosage: AT NIGHT
     Route: 048
  13. ROCEPHIN [Concomitant]
     Active Substance: CEFTRIAXONE SODIUM
  14. ELIQUIS [Concomitant]
     Active Substance: APIXABAN
     Indication: THROMBOSIS
     Route: 048
     Dates: start: 202011

REACTIONS (14)
  - Bronchitis [Unknown]
  - Pain [Recovered/Resolved]
  - Localised infection [Recovered/Resolved]
  - Polyp [Unknown]
  - Pneumonia [Recovered/Resolved]
  - Asthenia [Not Recovered/Not Resolved]
  - Oral infection [Recovered/Resolved]
  - Diarrhoea [Recovered/Resolved]
  - Large intestine perforation [Recovered/Resolved]
  - Colon cancer [Not Recovered/Not Resolved]
  - Nausea [Not Recovered/Not Resolved]
  - Intestinal perforation [Recovered/Resolved]
  - Thrombosis [Unknown]
  - Vomiting [Recovered/Resolved]

NARRATIVE: CASE EVENT DATE: 202010
